FAERS Safety Report 8093848-6 (Version None)
Quarter: 2012Q1

REPORT INFORMATION
  Report Type: 
  Country: None (occurrence: None)
  Receive Date: 20120129
  Receipt Date: 20110920
  Transmission Date: 20120608
  Serious: No
  Sender: FDA-Public Use
  Company Number: US-ABBOTT-11P-163-0854346-00

PATIENT
  Sex: Female
  Weight: 56.296 kg

DRUGS (3)
  1. HUMIRA [Suspect]
     Indication: RHEUMATOID ARTHRITIS
     Dates: start: 20060101
  2. SYNTHROID [Concomitant]
     Indication: HYPOTHYROIDISM
  3. ZOLOFT [Concomitant]
     Indication: DEPRESSION

REACTIONS (11)
  - DYSPNOEA [None]
  - HEADACHE [None]
  - ANXIETY [None]
  - RESTLESS LEGS SYNDROME [None]
  - RASH MACULAR [None]
  - APHTHOUS STOMATITIS [None]
  - INAPPROPRIATE SCHEDULE OF DRUG ADMINISTRATION [None]
  - RASH [None]
  - INCORRECT DOSE ADMINISTERED [None]
  - FUNGAL INFECTION [None]
  - ABDOMINAL PAIN [None]
